FAERS Safety Report 19101642 (Version 1)
Quarter: 2021Q2

REPORT INFORMATION
  Report Type: Spontaneous
  Country: US (occurrence: US)
  Receive Date: 20210407
  Receipt Date: 20210407
  Transmission Date: 20210717
  Serious: No
  Sender: FDA-Public Use
  Company Number: None

PATIENT
  Age: 65 Year
  Sex: Female
  Weight: 63.95 kg

DRUGS (16)
  1. BISACODYL EC [Concomitant]
     Active Substance: BISACODYL
  2. FULVESTRANT. [Concomitant]
     Active Substance: FULVESTRANT
  3. ONDANSETRON HCL [Concomitant]
     Active Substance: ONDANSETRON HYDROCHLORIDE
  4. MAGNESIUM HYDROXIDE. [Concomitant]
     Active Substance: MAGNESIUM HYDROXIDE
  5. VITAMIN D (CHOLECALCIFEROL) [Concomitant]
     Active Substance: CHOLECALCIFEROL
  6. BIOTIN [Concomitant]
     Active Substance: BIOTIN
  7. DEXAMETHASONE 4 MG TABLET [Concomitant]
     Active Substance: DEXAMETHASONE
  8. PROPRANOLOL HCL [Concomitant]
     Active Substance: PROPRANOLOL HYDROCHLORIDE
  9. COLACE [Concomitant]
     Active Substance: DOCUSATE SODIUM
  10. CENTRUM [Concomitant]
     Active Substance: VITAMINS
  11. SERTRALINE HCL [Concomitant]
     Active Substance: SERTRALINE HYDROCHLORIDE
  12. IBUPROFEN PM [Concomitant]
     Active Substance: DIPHENHYDRAMINE CITRATE\IBUPROFEN
  13. SENNOSIDES. [Concomitant]
     Active Substance: SENNOSIDES
  14. EVEROLIMUS. [Suspect]
     Active Substance: EVEROLIMUS
     Indication: BREAST CANCER FEMALE
     Route: 048
     Dates: start: 20210309, end: 20210406
  15. IBUPROFEN. [Concomitant]
     Active Substance: IBUPROFEN
  16. MELATONIN ER [Concomitant]

REACTIONS (1)
  - Leukopenia [None]

NARRATIVE: CASE EVENT DATE: 20210406
